FAERS Safety Report 5008381-5 (Version None)
Quarter: 2006Q2

REPORT INFORMATION
  Report Type: 
  Country: None (occurrence: None)
  Receive Date: 20060523
  Receipt Date: 20060517
  Transmission Date: 20061013
  Serious: Yes (Disabling)
  Sender: FDA-Public Use
  Company Number: 2006UW09758

PATIENT
  Sex: Female

DRUGS (3)
  1. SEROQUEL [Suspect]
     Route: 048
  2. ZYPREXA [Suspect]
  3. RISPERDAL [Suspect]

REACTIONS (3)
  - DIABETES MELLITUS [None]
  - ILL-DEFINED DISORDER [None]
  - INJURY [None]
